FAERS Safety Report 18263206 (Version 1)
Quarter: 2020Q3

REPORT INFORMATION
  Report Type: Spontaneous
  Country: US (occurrence: US)
  Receive Date: 20200914
  Receipt Date: 20200914
  Transmission Date: 20201103
  Serious: No
  Sender: FDA-Public Use
  Company Number: None

PATIENT
  Sex: Female

DRUGS (10)
  1. ACTEMRA [Suspect]
     Active Substance: TOCILIZUMAB
     Indication: RHEUMATOID ARTHRITIS
     Dosage: ?          OTHER FREQUENCY:WEEKLY;?
     Route: 058
     Dates: start: 20171206
  2. CLOPIDOGREL [Concomitant]
     Active Substance: CLOPIDOGREL BISULFATE
  3. LEVOTHYROXIN [Concomitant]
     Active Substance: LEVOTHYROXINE
  4. ATENOLOL. [Concomitant]
     Active Substance: ATENOLOL
  5. ATORVASTATIN [Concomitant]
     Active Substance: ATORVASTATIN
  6. INSULIN [Concomitant]
     Active Substance: INSULIN NOS
  7. AMLODIPINE [Concomitant]
     Active Substance: AMLODIPINE BESYLATE
  8. LANTUS [Concomitant]
     Active Substance: INSULIN GLARGINE
  9. ISOSORB [Concomitant]
  10. LISINOPRIL. [Concomitant]
     Active Substance: LISINOPRIL

REACTIONS (2)
  - Therapy interrupted [None]
  - Hospitalisation [None]
